FAERS Safety Report 19075876 (Version 2)
Quarter: 2021Q2

REPORT INFORMATION
  Report Type: Spontaneous
  Country: DE (occurrence: DE)
  Receive Date: 20210331
  Receipt Date: 20210409
  Transmission Date: 20210717
  Serious: Yes (Other)
  Sender: FDA-Public Use
  Company Number: DE-AUROBINDO-AUR-APL-2021-012499

PATIENT
  Age: 41 Year
  Sex: Female
  Weight: 72 kg

DRUGS (2)
  1. MOXIFLOXACIN PUREN 400MG, FILM?COATED TABLETS [Suspect]
     Active Substance: MOXIFLOXACIN
     Indication: PNEUMONIA
     Dosage: 400 MILLIGRAM
     Route: 048
     Dates: start: 20190205
  2. MOXIFLOXACIN PUREN 400MG, FILM?COATED TABLETS [Suspect]
     Active Substance: MOXIFLOXACIN
     Indication: PNEUMONITIS

REACTIONS (17)
  - Nausea [Recovered/Resolved with Sequelae]
  - Arthralgia [Recovered/Resolved with Sequelae]
  - Hyperhidrosis [Recovered/Resolved with Sequelae]
  - Tendon disorder [Recovered/Resolved with Sequelae]
  - Vision blurred [Recovered/Resolved with Sequelae]
  - Muscle rupture [Recovered/Resolved with Sequelae]
  - Amnesia [Recovered/Resolved with Sequelae]
  - Ocular discomfort [Recovered/Resolved with Sequelae]
  - Tendon pain [Recovered/Resolved with Sequelae]
  - Disturbance in attention [Recovered/Resolved with Sequelae]
  - Muscular weakness [Recovered/Resolved with Sequelae]
  - Dizziness [Recovered/Resolved with Sequelae]
  - Pain in extremity [Recovered/Resolved with Sequelae]
  - Fatigue [Recovered/Resolved with Sequelae]
  - Palpitations [Recovered/Resolved with Sequelae]
  - Neuralgia [Recovered/Resolved with Sequelae]
  - Bursitis [Recovered/Resolved with Sequelae]

NARRATIVE: CASE EVENT DATE: 201902
